FAERS Safety Report 17094031 (Version 1)
Quarter: 2019Q4

REPORT INFORMATION
  Report Type: Spontaneous
  Country: US (occurrence: US)
  Receive Date: 20191129
  Receipt Date: 20191129
  Transmission Date: 20200122
  Serious: Yes (Other)
  Sender: FDA-Public Use
  Company Number: US-TEVA-2019-US-1144413

PATIENT
  Age: 73 Year
  Sex: Female

DRUGS (1)
  1. MYCOPHENOLATE TEVA [Suspect]
     Active Substance: MYCOPHENOLATE MOFETIL
     Indication: LUNG TRANSPLANT
     Dates: start: 2015, end: 2019

REACTIONS (1)
  - Bone cancer [Unknown]
